FAERS Safety Report 11100565 (Version 1)
Quarter: 2015Q2

REPORT INFORMATION
  Report Type: Spontaneous
  Country: ES (occurrence: None)
  Receive Date: 20150506
  Receipt Date: 20150506
  Transmission Date: 20150821
  Serious: Yes (Hospitalization)
  Sender: FDA-Public Use
  Company Number: FK201502072

PATIENT
  Age: 74 Year
  Sex: Male

DRUGS (1)
  1. PACLITAXEL. [Suspect]
     Active Substance: PACLITAXEL
     Indication: LUNG NEOPLASM MALIGNANT
     Dosage: 75 MG, 1 WK, INTRAVENOUS (NOT OTHERWISE SPECIFIED)?
     Route: 042
     Dates: start: 20141201, end: 20141201

REACTIONS (4)
  - Tachypnoea [None]
  - Back pain [None]
  - Hypersensitivity [None]
  - Erythema [None]

NARRATIVE: CASE EVENT DATE: 20141201
